FAERS Safety Report 12341460 (Version 2)
Quarter: 2016Q2

REPORT INFORMATION
  Report Type: Spontaneous
  Country: US (occurrence: US)
  Receive Date: 20160506
  Receipt Date: 20160602
  Transmission Date: 20160815
  Serious: Yes (Hospitalization, Other)
  Sender: FDA-Public Use
  Company Number: US-MDT-ADR-2016-00329

PATIENT
  Age: 35 Year
  Sex: Male

DRUGS (2)
  1. BACLOFEN. [Suspect]
     Active Substance: BACLOFEN
     Dosage: 700 MCG/DAY
     Route: 037
  2. LIORESAL [Suspect]
     Active Substance: BACLOFEN
     Dosage: 1021.2 MCG/DAY
     Route: 037

REACTIONS (5)
  - Decubitus ulcer [Unknown]
  - Pyrexia [Unknown]
  - Staphylococcal infection [Unknown]
  - Sepsis [Unknown]
  - Medical device site infection [Unknown]

NARRATIVE: CASE EVENT DATE: 201601
